FAERS Safety Report 17872527 (Version 1)
Quarter: 2020Q2

REPORT INFORMATION
  Report Type: Spontaneous
  Country: GB (occurrence: GB)
  Receive Date: 20200608
  Receipt Date: 20200608
  Transmission Date: 20200714
  Serious: Yes (Other)
  Sender: FDA-Public Use
  Company Number: GB-JNJFOC-20200536865

PATIENT
  Age: 2 Decade
  Sex: Male

DRUGS (3)
  1. XEPLION [Suspect]
     Active Substance: PALIPERIDONE PALMITATE
  2. XEPLION [Suspect]
     Active Substance: PALIPERIDONE PALMITATE
     Indication: PRODUCT USED FOR UNKNOWN INDICATION
     Route: 030
  3. XEPLION [Suspect]
     Active Substance: PALIPERIDONE PALMITATE

REACTIONS (3)
  - White blood cell count decreased [Unknown]
  - Nephropathy [Unknown]
  - Neutropenia [Unknown]
